FAERS Safety Report 12003847 (Version 1)
Quarter: 2016Q1

REPORT INFORMATION
  Report Type: Spontaneous
  Country: SE (occurrence: SE)
  Receive Date: 20160204
  Receipt Date: 20160204
  Transmission Date: 20160526
  Serious: Yes (Other)
  Sender: FDA-Public Use
  Company Number: SE-BRISTOL-MYERS SQUIBB COMPANY-BMS-2016-005707

PATIENT
  Sex: Male

DRUGS (1)
  1. ABATACEPT [Suspect]
     Active Substance: ABATACEPT
     Indication: INCLUSION BODY MYOSITIS
     Dosage: 750 MG, QMO
     Route: 065

REACTIONS (3)
  - Dehydration [Unknown]
  - Renal failure [Unknown]
  - Off label use [Unknown]
